FAERS Safety Report 21725111 (Version 1)
Quarter: 2022Q4

REPORT INFORMATION
  Report Type: Report from Study
  Country: US (occurrence: US)
  Receive Date: 20221214
  Receipt Date: 20221214
  Transmission Date: 20230113
  Serious: Yes (Hospitalization)
  Sender: FDA-Public Use
  Company Number: US-JNJFOC-20221211270

PATIENT
  Age: 31 Year
  Sex: Female
  Weight: 71.8 kg

DRUGS (3)
  1. EPOPROSTENOL SODIUM [Suspect]
     Active Substance: EPOPROSTENOL SODIUM
     Indication: Pulmonary hypertension
     Route: 042
  2. OPSUMIT [Concomitant]
     Active Substance: MACITENTAN
  3. WARFARIN [Concomitant]
     Active Substance: WARFARIN

REACTIONS (3)
  - Thrombosis in device [Unknown]
  - Catheter site pain [Unknown]
  - Underdose [Unknown]

NARRATIVE: CASE EVENT DATE: 20221204
